FAERS Safety Report 15781191 (Version 1)
Quarter: 2019Q1

REPORT INFORMATION
  Report Type: Spontaneous
  Country: ES (occurrence: ES)
  Receive Date: 20190102
  Receipt Date: 20190102
  Transmission Date: 20190417
  Serious: Yes (Life-Threatening)
  Sender: FDA-Public Use
  Company Number: ES-SA-2018SA396097

PATIENT
  Age: 34 Year
  Sex: Female

DRUGS (2)
  1. PYRIDOXINE HYDROCHLORIDE. [Suspect]
     Active Substance: PYRIDOXINE HYDROCHLORIDE
     Indication: MORNING SICKNESS
     Dosage: 2 DF, QID, PRESCRIBED 4 TABLETS
     Route: 048
  2. DOXYLAMINE SUCCINATE. [Suspect]
     Active Substance: DOXYLAMINE SUCCINATE
     Indication: MORNING SICKNESS
     Dosage: 2 DF, QID, PRESCRIBED 4 TABLETS
     Route: 048

REACTIONS (8)
  - Anaphylactic reaction [Unknown]
  - Dyspnoea [Recovered/Resolved]
  - Pruritus generalised [Recovered/Resolved]
  - Drug hypersensitivity [Unknown]
  - Dizziness [Recovered/Resolved]
  - Hypotension [Recovered/Resolved]
  - Urticaria [Recovered/Resolved]
  - Exposure during pregnancy [Unknown]
